FAERS Safety Report 11334983 (Version 1)
Quarter: 2015Q3

REPORT INFORMATION
  Report Type: Spontaneous
  Country: US (occurrence: None)
  Receive Date: 20150731
  Receipt Date: 20150731
  Transmission Date: 20151125
  Serious: No
  Sender: FDA-Public Use
  Company Number: None

PATIENT
  Age: 47 Year
  Sex: Male

DRUGS (1)
  1. LEVOFLOXACIN. [Suspect]
     Active Substance: LEVOFLOXACIN
     Indication: PNEUMONIA
     Dosage: EVERY 48 HOURS
     Route: 048
     Dates: start: 20150105, end: 20150108

REACTIONS (3)
  - Swollen tongue [None]
  - Oropharyngeal swelling [None]
  - Eyelid oedema [None]

NARRATIVE: CASE EVENT DATE: 20150108
